FAERS Safety Report 9773423 (Version 2)
Quarter: 2013Q4

REPORT INFORMATION
  Report Type: Spontaneous
  Country: BE (occurrence: BE)
  Receive Date: 20131219
  Receipt Date: 20131219
  Transmission Date: 20140711
  Serious: Yes (Death)
  Sender: FDA-Public Use
  Company Number: BE-BAXTER-2013BAX042351

PATIENT
  Sex: Male

DRUGS (1)
  1. EXTRANEAL, SOLUTION POUR DIALYSE P?RITON?ALE [Suspect]
     Indication: CARDIORENAL SYNDROME
     Route: 033

REACTIONS (1)
  - Cardiac arrest [Fatal]
